FAERS Safety Report 7644125-6 (Version None)
Quarter: 2011Q3

REPORT INFORMATION
  Report Type: 
  Country: None (occurrence: None)
  Receive Date: 20110728
  Receipt Date: 20110728
  Transmission Date: 20111222
  Serious: Yes (Other)
  Sender: FDA-Public Use
  Company Number: None

PATIENT
  Age: 73 Year
  Sex: Male
  Weight: 110 kg

DRUGS (1)
  1. SINGULAIR [Suspect]
     Indication: RHINITIS ALLERGIC
     Dosage: 10 MG DAILY ORAL
     Route: 048
     Dates: start: 20110715, end: 20110725

REACTIONS (8)
  - PRURITUS [None]
  - AGITATION [None]
  - HALLUCINATION [None]
  - CHEST PAIN [None]
  - AGGRESSION [None]
  - HEART RATE IRREGULAR [None]
  - ABNORMAL DREAMS [None]
  - ANGIOEDEMA [None]
